FAERS Safety Report 12816885 (Version 1)
Quarter: 2016Q4

REPORT INFORMATION
  Report Type: Report from Study
  Country: US (occurrence: US)
  Receive Date: 20161006
  Receipt Date: 20161006
  Transmission Date: 20170207
  Serious: Yes (Life-Threatening, Other)
  Sender: FDA-Public Use
  Company Number: US-ROCHE-783022

PATIENT
  Age: 51 Year
  Sex: Female
  Weight: 83.2 kg

DRUGS (9)
  1. CARBOPLATIN. [Suspect]
     Active Substance: CARBOPLATIN
     Indication: OVARIAN CANCER STAGE III
     Dosage: DOSE 6 AUC INTRAVENOUS OVER 30 MINUTES ON DAY 1
     Route: 042
     Dates: start: 20110105
  2. BEVACIZUMAB [Suspect]
     Active Substance: BEVACIZUMAB
     Dosage: RECEIVED ON 16/FEB/2011, 15/MAR/2011, 05/APR/2011, 29/APR/2011, 08/JUN/2011, 27/JUL/2011, 19/AUG/201
     Route: 042
  3. VELIPARIB [Suspect]
     Active Substance: VELIPARIB
     Dosage: RECEIVED ON 27/JUL/2011, 19/AUG/2011, 09/NOV/2011, 30/NOV/2011, 11/JAN/2012, 01/FEB/2012
     Route: 048
  4. BEVACIZUMAB [Suspect]
     Active Substance: BEVACIZUMAB
     Route: 042
  5. BEVACIZUMAB [Suspect]
     Active Substance: BEVACIZUMAB
     Indication: OVARIAN CANCER STAGE III
     Dosage: OVER 30-90 MINS ON DAY,  LAST DOSE ADMINSTRATION DATE: 05 APRIL 2011
     Route: 042
  6. VELIPARIB [Suspect]
     Active Substance: VELIPARIB
     Indication: OVARIAN CANCER STAGE III
     Route: 048
  7. VELIPARIB [Suspect]
     Active Substance: VELIPARIB
     Route: 048
  8. PACLITAXEL. [Suspect]
     Active Substance: PACLITAXEL
     Indication: OVARIAN CANCER STAGE III
     Dosage: OVER 1 HOUR, ON DAY 1, 8AND 15
     Route: 042
     Dates: start: 20110105
  9. VELIPARIB [Suspect]
     Active Substance: VELIPARIB
     Dosage: RECEIVED ON 26/JAN/2011, 16/FEB/2011, 15/MAR/2011,05/APR/2011
     Route: 048

REACTIONS (3)
  - Neutrophil count decreased [Not Recovered/Not Resolved]
  - White blood cell count decreased [Unknown]
  - Anaemia [Unknown]

NARRATIVE: CASE EVENT DATE: 20110301
